FAERS Safety Report 6726618-9 (Version None)
Quarter: 2010Q2

REPORT INFORMATION
  Report Type: 
  Country: None (occurrence: None)
  Receive Date: 20100514
  Receipt Date: 20100504
  Transmission Date: 20101027
  Serious: Yes (Other)
  Sender: FDA-Public Use
  Company Number: US-ABBOTT-10P-163-0641882-00

PATIENT
  Age: 52 Year
  Sex: Male

DRUGS (17)
  1. NORVIR [Suspect]
     Indication: DRUG USE FOR UNKNOWN INDICATION
  2. EFAVIRENZ [Suspect]
     Indication: DRUG USE FOR UNKNOWN INDICATION
     Route: 048
  3. DIDANOSINE [Suspect]
     Indication: DRUG USE FOR UNKNOWN INDICATION
  4. STAVUDINE [Suspect]
     Indication: DRUG USE FOR UNKNOWN INDICATION
  5. RALTEGRAVIR POTASSIUM [Suspect]
     Indication: DRUG USE FOR UNKNOWN INDICATION
     Route: 048
  6. SAQUINAVIR [Suspect]
     Indication: DRUG USE FOR UNKNOWN INDICATION
  7. NELFINAVIR MESILATE [Suspect]
     Indication: DRUG USE FOR UNKNOWN INDICATION
  8. ZIDOVUDINE [Suspect]
     Indication: DRUG USE FOR UNKNOWN INDICATION
  9. LAMIVUDINE [Suspect]
     Indication: DRUG USE FOR UNKNOWN INDICATION
  10. ABACAVIR SULFATE [Suspect]
     Indication: DRUG USE FOR UNKNOWN INDICATION
  11. NEVIRAPINE [Suspect]
     Indication: DRUG USE FOR UNKNOWN INDICATION
  12. DELAVIRDINE MESYLATE [Suspect]
     Indication: DRUG USE FOR UNKNOWN INDICATION
  13. INDINAVIR SULFATE [Suspect]
     Indication: DRUG USE FOR UNKNOWN INDICATION
     Route: 048
  14. LOPINAVIR [Suspect]
     Indication: DRUG USE FOR UNKNOWN INDICATION
  15. TENOFOVIR [Suspect]
     Indication: DRUG USE FOR UNKNOWN INDICATION
  16. DARUNAVIR [Suspect]
     Indication: DRUG USE FOR UNKNOWN INDICATION
  17. ETRAVIRINE [Suspect]
     Indication: DRUG USE FOR UNKNOWN INDICATION

REACTIONS (5)
  - DIPLOPIA [None]
  - EYELID PTOSIS [None]
  - LIPODYSTROPHY ACQUIRED [None]
  - MITOCHONDRIAL TOXICITY [None]
  - PROGRESSIVE EXTERNAL OPHTHALMOPLEGIA [None]
